FAERS Safety Report 7629054-6 (Version None)
Quarter: 2011Q3

REPORT INFORMATION
  Report Type: 
  Country: None (occurrence: None)
  Receive Date: 20110722
  Receipt Date: 20110714
  Transmission Date: 20111222
  Serious: Yes (Death, Hospitalization, Other)
  Sender: FDA-Public Use
  Company Number: GB-PFIZER INC-2009237549

PATIENT
  Age: 19 Year
  Sex: Female
  Weight: 50 kg

DRUGS (5)
  1. OMEPRAZOLE [Interacting]
     Dosage: 20 MG, 4X/DAY
  2. DOMPERIDONE [Interacting]
     Indication: EAR INFECTION
  3. THELIN [Suspect]
     Indication: PULMONARY ARTERIAL HYPERTENSION
     Dosage: 100 MG, 1X/DAY
     Route: 048
     Dates: start: 20090329, end: 20090626
  4. AMOXICILLIN [Interacting]
     Indication: EAR INFECTION
     Dosage: UNK
     Dates: start: 20090624
  5. SILDENAFIL CITRATE [Interacting]
     Indication: PULMONARY HYPERTENSION
     Dosage: 50 MG, 3X/DAY
     Dates: start: 20080926

REACTIONS (17)
  - ENCEPHALOPATHY [None]
  - BRAIN HERNIATION [None]
  - VOMITING [None]
  - PUPIL FIXED [None]
  - HEPATITIS ACUTE [None]
  - JAUNDICE [None]
  - PRURITUS [None]
  - COAGULOPATHY [None]
  - EAR PAIN [None]
  - BRAIN OEDEMA [None]
  - ACUTE HEPATIC FAILURE [None]
  - CIRCULATORY COLLAPSE [None]
  - LYMPHADENOPATHY [None]
  - NAUSEA [None]
  - CHEST PAIN [None]
  - DRUG INTERACTION [None]
  - LIVER FUNCTION TEST ABNORMAL [None]
